FAERS Safety Report 6640387-2 (Version None)
Quarter: 2010Q1

REPORT INFORMATION
  Report Type: 
  Country: None (occurrence: None)
  Receive Date: 20100318
  Receipt Date: 20100311
  Transmission Date: 20100710
  Serious: Yes (Other)
  Sender: FDA-Public Use
  Company Number: ES-BAYER-201018626GPV

PATIENT
  Age: 81 Year
  Sex: Male

DRUGS (5)
  1. ADIRO [Suspect]
     Indication: CARDIOVASCULAR EVENT PROPHYLAXIS
     Dosage: TOTAL DAILY DOSE: 100 MG  UNIT DOSE: 100 MG
     Route: 048
     Dates: start: 20090901, end: 20100104
  2. SINTROM [Concomitant]
     Route: 048
     Dates: start: 20090901
  3. OMEPRAZOLE [Concomitant]
     Dosage: TOTAL DAILY DOSE: 20 MG
     Route: 048
     Dates: start: 20090901, end: 20091201
  4. FUROSEMIDE [Concomitant]
     Indication: HYPERTENSION
     Dosage: TOTAL DAILY DOSE: 20 MG  UNIT DOSE: 40 MG
     Route: 048
  5. RENITEC [Concomitant]
     Indication: HYPERTENSION
     Dosage: TOTAL DAILY DOSE: 5 MG  UNIT DOSE: 5 MG
     Route: 048
     Dates: start: 20070101

REACTIONS (1)
  - LEUKOCYTOCLASTIC VASCULITIS [None]
